FAERS Safety Report 24438508 (Version 1)
Quarter: 2024Q4

REPORT INFORMATION
  Report Type: Spontaneous
  Country: US (occurrence: None)
  Receive Date: 20241015
  Receipt Date: 20241015
  Transmission Date: 20250115
  Serious: Yes (Death)
  Sender: Public
  Company Number: None

PATIENT
  Age: 73 Year
  Sex: Male

DRUGS (9)
  1. ENVARSUS XR [Suspect]
     Active Substance: TACROLIMUS
     Indication: Renal transplant
     Dosage: FREQUENCY : DAILY;?
     Route: 048
     Dates: start: 20230717
  2. CIPROFLOXACIN [Concomitant]
     Active Substance: CIPROFLOXACIN
  3. CLONIDINE [Concomitant]
     Active Substance: CLONIDINE
  4. DIFICID [Concomitant]
     Active Substance: FIDAXOMICIN
  5. DONEPEZIL [Concomitant]
     Active Substance: DONEPEZIL
  6. EZETIMIBE [Concomitant]
     Active Substance: EZETIMIBE
  7. FAMOTIDINE [Concomitant]
     Active Substance: FAMOTIDINE
  8. HALOPERIDOL [Concomitant]
     Active Substance: HALOPERIDOL
  9. HYOSCYAMINE [Concomitant]
     Active Substance: HYOSCYAMINE

REACTIONS (1)
  - Neoplasm malignant [None]

NARRATIVE: CASE EVENT DATE: 20240918
